FAERS Safety Report 4798115-1 (Version None)
Quarter: 2005Q4

REPORT INFORMATION
  Report Type: 
  Country: None (occurrence: None)
  Receive Date: 20051011
  Receipt Date: 20050927
  Transmission Date: 20060501
  Serious: Yes (Hospitalization)
  Sender: FDA-Public Use
  Company Number: 2005PV001263

PATIENT
  Age: 59 Year
  Sex: Male
  Weight: 93.441 kg

DRUGS (13)
  1. BYETTA [Suspect]
     Indication: DIABETES MELLITUS INSULIN-DEPENDENT
     Dosage: SEE IMAGE
     Route: 058
     Dates: start: 20050818, end: 20050822
  2. BYETTA [Suspect]
     Indication: DIABETES MELLITUS INSULIN-DEPENDENT
     Dosage: SEE IMAGE
     Route: 058
     Dates: start: 20050907, end: 20050926
  3. LISINOPRIL [Suspect]
     Indication: HYPERTENSION
     Dates: end: 20050801
  4. HYDROCHLOROTHIAZIDE [Suspect]
     Indication: HYPERTENSION
     Dosage: QD
     Dates: end: 20050801
  5. LANTUS [Concomitant]
  6. PHENTERMINE [Concomitant]
  7. HUMALOG [Concomitant]
  8. ACTOS [Concomitant]
  9. RANITIDINE [Concomitant]
  10. METOPROLOL [Concomitant]
  11. ATIVAN [Concomitant]
  12. ASPIRIN [Concomitant]
  13. CIPROFLOXACIN [Concomitant]

REACTIONS (11)
  - ABDOMINAL TENDERNESS [None]
  - ANXIETY [None]
  - BLOOD GLUCOSE INCREASED [None]
  - BLOOD PRESSURE ABNORMAL [None]
  - DEHYDRATION [None]
  - GASTROINTESTINAL DISORDER [None]
  - NAUSEA [None]
  - NEUROPATHY [None]
  - RENAL FAILURE ACUTE [None]
  - RENAL TUBULAR NECROSIS [None]
  - VOMITING [None]
